FAERS Safety Report 10076976 (Version 2)
Quarter: 2014Q2

REPORT INFORMATION
  Report Type: Report from Study
  Country: US (occurrence: US)
  Receive Date: 20140414
  Receipt Date: 20140424
  Transmission Date: 20141212
  Serious: Yes (Other)
  Sender: FDA-Public Use
  Company Number: US-ABBVIE-14P-163-1221871-00

PATIENT
  Age: 68 Year
  Sex: Female
  Weight: 75.82 kg

DRUGS (10)
  1. HUMIRA [Suspect]
     Indication: RHEUMATOID ARTHRITIS
     Dates: start: 2009, end: 201402
  2. HUMIRA [Suspect]
     Dates: start: 201402
  3. HUMIRA [Suspect]
     Indication: RHEUMATOID ARTHRITIS
     Dosage: UNKNOWN DOSING. DIFFERENT DOSES WHEN IN STUDY.
     Dates: start: 1999, end: 2009
  4. METHOTREXATE [Concomitant]
     Indication: RHEUMATOID ARTHRITIS
  5. LOTREL [Concomitant]
     Indication: HYPERTENSION
  6. UNKNOWN CREAMS [Concomitant]
     Indication: HORMONE REPLACEMENT THERAPY
  7. MULTIVITAMIN [Concomitant]
     Indication: VITAMIN SUPPLEMENTATION
  8. FOLIC ACID [Concomitant]
     Indication: PRODUCT USED FOR UNKNOWN INDICATION
  9. VITAMIN C [Concomitant]
     Indication: VITAMIN SUPPLEMENTATION
  10. GRAPE SEED EXTRACT [Concomitant]
     Indication: ECZEMA

REACTIONS (7)
  - Monoclonal gammopathy [Not Recovered/Not Resolved]
  - Platelet count abnormal [Not Recovered/Not Resolved]
  - Osteoporosis [Not Recovered/Not Resolved]
  - Haematocrit decreased [Not Recovered/Not Resolved]
  - Haemoglobin decreased [Not Recovered/Not Resolved]
  - Osteomyelitis [Recovered/Resolved]
  - Immunodeficiency [Unknown]
